FAERS Safety Report 5311733-7 (Version None)
Quarter: 2007Q2

REPORT INFORMATION
  Report Type: 
  Country: None (occurrence: None)
  Receive Date: 20070430
  Receipt Date: 20070426
  Transmission Date: 20071010
  Serious: Yes (Other)
  Sender: FDA-Public Use
  Company Number: GBWYE028604JAN07

PATIENT
  Sex: Female

DRUGS (4)
  1. IBUPROFEN [Suspect]
     Dosage: UNKNOWN
     Route: 048
  2. PAROXETINE HYDROCHLORIDE [Suspect]
     Indication: DEPRESSION
     Dosage: UNKNOWN
     Dates: start: 19970902
  3. PAROXETINE HYDROCHLORIDE [Suspect]
     Dosage: 'ONE QUARTER OF TABLET' FREQUENCY UNKNOWN
     Dates: end: 19990301
  4. PAROXETINE HYDROCHLORIDE [Suspect]
     Dates: start: 19990301, end: 20010101

REACTIONS (15)
  - ANXIETY [None]
  - BINGE EATING [None]
  - CONDITION AGGRAVATED [None]
  - DEPRESSION [None]
  - DISTURBANCE IN ATTENTION [None]
  - DRUG ABUSER [None]
  - DRUG DEPENDENCE [None]
  - DRUG WITHDRAWAL SYNDROME [None]
  - DRY MOUTH [None]
  - FEELING ABNORMAL [None]
  - HYPERHIDROSIS [None]
  - INSOMNIA [None]
  - OVERDOSE [None]
  - PRURITUS [None]
  - SUICIDAL IDEATION [None]
